FAERS Safety Report 7950503-8 (Version None)
Quarter: 2011Q4

REPORT INFORMATION
  Report Type: 
  Country: None (occurrence: None)
  Receive Date: 20111130
  Receipt Date: 20111121
  Transmission Date: 20120403
  Serious: Yes (Hospitalization, Other)
  Sender: FDA-Public Use
  Company Number: US-ASTRAZENECA-2011SE46972

PATIENT
  Age: 63 Year
  Sex: Female
  Weight: 64 kg

DRUGS (16)
  1. SEROQUEL [Suspect]
     Route: 048
     Dates: start: 20090101
  2. SEROQUEL [Suspect]
     Route: 048
  3. VICODIN [Concomitant]
     Dosage: AS NEEDED
  4. KLOR-CON [Concomitant]
  5. ZOLPIDEM [Concomitant]
  6. SEROQUEL [Suspect]
     Indication: BIPOLAR DISORDER
     Route: 048
  7. SEROQUEL [Suspect]
     Dosage: 200 MG, HALF TABLET
     Route: 048
  8. DILTIAZEM HCL [Concomitant]
  9. ATIVAN [Concomitant]
  10. ACETAZOLAMIDE [Concomitant]
  11. NEXIUM [Concomitant]
     Route: 048
  12. SYMBICORT [Concomitant]
     Route: 048
  13. CYMBALTA [Concomitant]
  14. SPIRIVA [Concomitant]
  15. PROAIR HFA [Concomitant]
  16. SEROQUEL [Suspect]
     Route: 048

REACTIONS (12)
  - DIARRHOEA [None]
  - EYE PRURITUS [None]
  - CATARACT [None]
  - CONFUSIONAL STATE [None]
  - INCORRECT DOSE ADMINISTERED [None]
  - PSYCHOMOTOR HYPERACTIVITY [None]
  - RENAL FAILURE [None]
  - GLAUCOMA [None]
  - WRONG TECHNIQUE IN DRUG USAGE PROCESS [None]
  - ADVERSE DRUG REACTION [None]
  - MOOD SWINGS [None]
  - EYELID PTOSIS [None]
